FAERS Safety Report 6248693-0 (Version None)
Quarter: 2009Q2

REPORT INFORMATION
  Report Type: 
  Country: None (occurrence: None)
  Receive Date: 20090624
  Receipt Date: 20090129
  Transmission Date: 20091009
  Serious: Yes (Hospitalization, Other)
  Sender: FDA-Public Use
  Company Number: US-1168011

PATIENT
  Age: 81 Year
  Sex: Male
  Weight: 90.7194 kg

DRUGS (8)
  1. TIMOLOL MALEATE [Suspect]
     Indication: GLAUCOMA
     Dosage: (1 GTT OU QD OPHTHALMIC)
     Route: 047
  2. GEMFIBROZIL [Concomitant]
  3. DOXAZOSIN MESYLATE [Concomitant]
  4. FUROSEMIDE [Concomitant]
  5. GLYBURIDE [Concomitant]
  6. METOLAZONE [Concomitant]
  7. KLOR-CON [Concomitant]
  8. LUMIGAN [Concomitant]

REACTIONS (2)
  - ASTHENIA [None]
  - BRADYCARDIA [None]
